FAERS Safety Report 18237272 (Version 1)
Quarter: 2020Q3

REPORT INFORMATION
  Report Type: Spontaneous
  Country: GB (occurrence: GB)
  Receive Date: 20200907
  Receipt Date: 20200907
  Transmission Date: 20201103
  Serious: Yes (Life-Threatening, Other)
  Sender: FDA-Public Use
  Company Number: GB-GLAXOSMITHKLINE-GB2020174985

PATIENT
  Age: 67 Year
  Sex: Male
  Weight: 91 kg

DRUGS (9)
  1. NEVIRAPINE. [Suspect]
     Active Substance: NEVIRAPINE
     Indication: HIV INFECTION
     Dosage: 400 MG, ADMINISTERED WITH TRUVADA
     Route: 048
     Dates: start: 20191101, end: 20191212
  2. RALTEGRAVIR. [Suspect]
     Active Substance: RALTEGRAVIR
     Indication: HIV INFECTION
     Dosage: 1200 MG, ADMINISTERED WITH TRUVADA
     Route: 048
     Dates: start: 201807, end: 20190430
  3. TRUVADA [Suspect]
     Active Substance: EMTRICITABINE\TENOFOVIR DISOPROXIL FUMARATE
     Dosage: 400 UNK
     Route: 048
     Dates: start: 20191101, end: 20191212
  4. LAMIVUDINE. [Suspect]
     Active Substance: LAMIVUDINE
     Indication: HIV INFECTION
     Dosage: 50 MG
     Route: 048
     Dates: start: 20190926, end: 20191031
  5. RILPIVIRINE [Suspect]
     Active Substance: RILPIVIRINE
     Indication: HIV INFECTION
     Dosage: 75 MG, 50MG+25MG
     Route: 048
     Dates: start: 20200308, end: 20200320
  6. DOLUTEGRAVIR [Suspect]
     Active Substance: DOLUTEGRAVIR
     Dosage: 50 MG, 50 MG, ADMINISTERED WITH LAMIVUDINE
     Route: 048
     Dates: start: 20200308, end: 20200320
  7. TRUVADA [Suspect]
     Active Substance: EMTRICITABINE\TENOFOVIR DISOPROXIL FUMARATE
     Indication: HIV INFECTION
     Dosage: 1200 MG
     Route: 048
     Dates: start: 201807, end: 20190430
  8. EVIPLERA [Suspect]
     Active Substance: EMTRICITABINE\RILPIVIRINE\TENOFOVIR DISOPROXIL FUMARATE
     Indication: HIV INFECTION
     Dosage: 25 MG
     Route: 048
     Dates: start: 20190501, end: 20190612
  9. DOLUTEGRAVIR [Suspect]
     Active Substance: DOLUTEGRAVIR
     Indication: HIV INFECTION
     Dosage: UNK, 50MG+25MG
     Route: 048
     Dates: start: 20190926, end: 20191031

REACTIONS (5)
  - Muscular weakness [Unknown]
  - Erectile dysfunction [Not Recovered/Not Resolved]
  - Dizziness [Unknown]
  - Neuropathy peripheral [Unknown]
  - Gynaecomastia [Unknown]

NARRATIVE: CASE EVENT DATE: 201811
